FAERS Safety Report 6221277-6 (Version None)
Quarter: 2009Q2

REPORT INFORMATION
  Report Type: 
  Country: None (occurrence: None)
  Receive Date: 20090610
  Receipt Date: 20090601
  Transmission Date: 20091009
  Serious: Yes (Other)
  Sender: FDA-Public Use
  Company Number: CA-PURDUE-CAN_2009_0000917

PATIENT

DRUGS (7)
  1. OXYIR TABLETS 20 MG [Suspect]
     Indication: PAIN
     Dosage: 1-2 TABLET, PRN
     Route: 048
     Dates: start: 20090109
  2. OXYIR TABLETS 20 MG [Suspect]
     Dosage: 1-2 TABLET, PRN
     Route: 048
     Dates: start: 20090101
  3. OXYCODONE HCL [Concomitant]
     Indication: PAIN
     Dosage: 10 MG, UNK
     Route: 048
     Dates: start: 20080601
  4. OXYCONTIN [Concomitant]
     Indication: PAIN
     Dosage: 20 MG, BID
     Route: 048
     Dates: start: 20080601, end: 20080801
  5. OXYCONTIN [Concomitant]
     Dosage: 40 MG, BID
     Route: 048
     Dates: start: 20080801, end: 20081001
  6. OXYCONTIN [Concomitant]
     Dosage: 20 MG, BID
     Route: 048
     Dates: start: 20081001, end: 20081101
  7. ALERTEC [Concomitant]
     Indication: DRUG USE FOR UNKNOWN INDICATION
     Dosage: UNK, UNK
     Route: 048

REACTIONS (3)
  - DRUG EFFECT INCREASED [None]
  - MALAISE [None]
  - MIOSIS [None]
